FAERS Safety Report 23264217 (Version 10)
Quarter: 2025Q2

REPORT INFORMATION
  Report Type: Spontaneous
  Country: US (occurrence: US)
  Receive Date: 20231205
  Receipt Date: 20250521
  Transmission Date: 20250717
  Serious: Yes (Disabling, Other)
  Sender: PFIZER
  Company Number: US-PFIZER INC-PV202300196676

PATIENT
  Age: 82 Year
  Sex: Male

DRUGS (9)
  1. VYNDAMAX [Suspect]
     Active Substance: TAFAMIDIS
     Indication: Amyloidosis
     Dosage: 61 MG, 1X/DAY
     Route: 048
  2. VYNDAMAX [Suspect]
     Active Substance: TAFAMIDIS
     Indication: Essential hypertension
  3. VYNDAMAX [Suspect]
     Active Substance: TAFAMIDIS
     Indication: Atrioventricular block
  4. VYNDAMAX [Suspect]
     Active Substance: TAFAMIDIS
     Indication: Atrial tachycardia
  5. VYNDAMAX [Suspect]
     Active Substance: TAFAMIDIS
     Indication: Atrial fibrillation
  6. VYNDAMAX [Suspect]
     Active Substance: TAFAMIDIS
     Indication: Cardiac pacemaker insertion
  7. VYNDAMAX [Suspect]
     Active Substance: TAFAMIDIS
     Indication: Cardiomyopathy
  8. VYNDAMAX [Suspect]
     Active Substance: TAFAMIDIS
     Indication: Cardiac amyloidosis
  9. ELIQUIS [Concomitant]
     Active Substance: APIXABAN
     Dosage: 2.5 MG, 2X/DAY
     Route: 048

REACTIONS (1)
  - Blindness [Unknown]
